FAERS Safety Report 5943434-6 (Version None)
Quarter: 2008Q4

REPORT INFORMATION
  Report Type: 
  Country: None (occurrence: None)
  Receive Date: 20081106
  Receipt Date: 20081023
  Transmission Date: 20090506
  Serious: Yes (Other)
  Sender: FDA-Public Use
  Company Number: US-ELI_LILLY_AND_COMPANY-US200810000536

PATIENT
  Age: 53 Year
  Sex: Female
  Weight: 53.515 kg

DRUGS (6)
  1. FORTEO [Suspect]
     Indication: OSTEOPOROSIS
     Dosage: 20 UG, DAILY (1/D)
     Dates: start: 20081001
  2. CLARITIN [Concomitant]
     Indication: SEASONAL ALLERGY
     Dosage: 1 D/F, DAILY (1/D)
  3. CALCIUM [Concomitant]
     Indication: OSTEOPOROSIS
     Dosage: 500 MG, 2/D
  4. MULTI-VITAMIN [Concomitant]
     Indication: SUPPLEMENTATION THERAPY
     Dosage: 1 D/F, DAILY (1/D)
  5. ACTONEL [Concomitant]
     Indication: OSTEOPOROSIS
     Dosage: 35 MG, WEEKLY (1/W)
     Dates: end: 20081001
  6. VITAMIN D [Concomitant]
     Indication: OSTEOPOROSIS
     Dosage: 200 U, 2/D

REACTIONS (1)
  - SYNCOPE [None]
